FAERS Safety Report 14403989 (Version 1)
Quarter: 2018Q1

REPORT INFORMATION
  Report Type: Spontaneous
  Country: GB (occurrence: GB)
  Receive Date: 20180117
  Receipt Date: 20180117
  Transmission Date: 20180509
  Serious: Yes (Other)
  Sender: FDA-Public Use
  Company Number: GB-TEVA-2018-GB-846772

PATIENT
  Age: 33 Year
  Sex: Female

DRUGS (3)
  1. ETOPOSIDE. [Suspect]
     Active Substance: ETOPOSIDE
     Indication: OVARIAN SERTOLI-LEYDIG CELL TUMOUR
     Dosage: 3 CYCLES
     Route: 065
  2. BLEOMYCIN [Suspect]
     Active Substance: BLEOMYCIN SULFATE
     Indication: OVARIAN SERTOLI-LEYDIG CELL TUMOUR
     Dosage: 3 CYCLES
     Route: 065
  3. CISPLATIN. [Suspect]
     Active Substance: CISPLATIN
     Indication: OVARIAN SERTOLI-LEYDIG CELL TUMOUR
     Dosage: 3 CYCLES
     Route: 065

REACTIONS (2)
  - Pulmonary sepsis [Unknown]
  - Anastomotic complication [Unknown]
